FAERS Safety Report 7903755-4 (Version None)
Quarter: 2011Q4

REPORT INFORMATION
  Report Type: 
  Country: None (occurrence: None)
  Receive Date: 20111109
  Receipt Date: 20111102
  Transmission Date: 20120403
  Serious: Yes (Life-Threatening)
  Sender: FDA-Public Use
  Company Number: PHHY2011US098240

PATIENT
  Age: 17 Month

DRUGS (1)
  1. PROPRANOLOL [Suspect]
     Indication: CAPILLARY DISORDER
     Dosage: 1 MG/KG, BID

REACTIONS (1)
  - DEPRESSED LEVEL OF CONSCIOUSNESS [None]
